FAERS Safety Report 6094728-8 (Version None)
Quarter: 2009Q1

REPORT INFORMATION
  Report Type: 
  Country: None (occurrence: None)
  Receive Date: 20090225
  Receipt Date: 20090212
  Transmission Date: 20090719
  Serious: Yes (Other)
  Sender: FDA-Public Use
  Company Number: 8043211

PATIENT
  Sex: Male
  Weight: 3.584 kg

DRUGS (5)
  1. KEPPRA [Suspect]
     Indication: EPILEPSY
     Dosage: 500 MG/D TRP
     Route: 064
     Dates: end: 20081115
  2. DEPAKOTE [Concomitant]
  3. FOLIC ACID [Concomitant]
  4. VITAMINS [Concomitant]
  5. VITAMIN TAB [Concomitant]

REACTIONS (2)
  - MATERNAL DRUGS AFFECTING FOETUS [None]
  - PREMATURE BABY [None]
